FAERS Safety Report 9342426 (Version 1)
Quarter: 2013Q2

REPORT INFORMATION
  Report Type: Spontaneous
  Country: GB (occurrence: None)
  Receive Date: 20130607
  Receipt Date: 20130607
  Transmission Date: 20140414
  Serious: Yes (Death)
  Sender: FDA-Public Use
  Company Number: 2013GB0216

PATIENT
  Age: 49 Year
  Sex: Female

DRUGS (17)
  1. KINERET (ANAKINRA), NOT AVAILABLE [Suspect]
     Indication: STILL^S DISEASE ADULT ONSET
     Route: 058
     Dates: start: 20130504, end: 20130510
  2. ALEFENTANIL (ALFENTANIL)(ALFENTANIL) [Concomitant]
  3. AMIODARONE (AMIODARONE)(AMIODARONE) [Concomitant]
  4. ATRACURIUM (ATRACURIUM)(ATRACURIUM) [Concomitant]
  5. ERYTHROMYCIN (ERYTHROMYCIN)(ERYTHROMYCIN) [Concomitant]
  6. FENTANYL (FENTANYL)(FENTANYL) [Concomitant]
  7. HEPARIN SODIUM [Concomitant]
  8. METOCLOPRAMIDE (METOCLOPRAMIDE)(METOCLOPRAMIDE) [Concomitant]
  9. METOPROLOL (METOPROLOL)(METOPROLOL) [Concomitant]
  10. MIDAZOLAM (MIDAZOLAM)(MIDAZOLAM) [Concomitant]
  11. NORADRENALINE (NOREPINEPHRINE)(NOREPINEPHRINE) [Concomitant]
  12. OMEPRAZOLE (OMEPRAZOLE)(OMEPRAZOLE) [Concomitant]
  13. PARACETAMOL (PARACETAMOL)(PARACETAMOL) [Concomitant]
  14. PREDNISOLONE (PREDNISOLONE)(PREDNISOLONE) [Concomitant]
  15. PROPOFOL (PROPOFOL)(PROPOFOL) [Concomitant]
  16. TAZOCIN (PIP/TAZO)(PIPERACILLIN SODIUM, TAZOBACTAM SODIUM) [Concomitant]
  17. VANCOMYCIN (VANCOMYCIN)(VANCOMYCIN) [Concomitant]

REACTIONS (1)
  - Intestinal ischaemia [None]
